FAERS Safety Report 8314677 (Version 2)
Quarter: 2012Q4

REPORT INFORMATION
  Report Type: Report from Study
  Country: ES (occurrence: ES)
  Receive Date: 20111229
  Receipt Date: 20121102
  Transmission Date: 20130627
  Serious: Yes (Other)
  Sender: FDA-Public Use
  Company Number: ES-ROCHE-1022493

PATIENT
  Age: 40 Year
  Sex: Female
  Weight: 94 kg

DRUGS (7)
  1. TOCILIZUMAB [Suspect]
     Indication: RHEUMATOID ARTHRITIS
     Route: 042
     Dates: start: 20110117, end: 20110718
  2. TOCILIZUMAB [Suspect]
     Route: 048
     Dates: start: 20110117, end: 20110718
  3. TOCILIZUMAB [Suspect]
     Route: 065
     Dates: start: 20120322
  4. METHOTREXATE [Concomitant]
     Route: 065
     Dates: start: 20111003
  5. PREDNISONE [Concomitant]
     Indication: RHEUMATOID ARTHRITIS
     Route: 048
     Dates: start: 20100202
  6. PREDNISONE [Concomitant]
     Route: 065
     Dates: start: 20111003
  7. ADALIMUMAB [Concomitant]
     Route: 065
     Dates: start: 201201, end: 201203

REACTIONS (3)
  - Skin reaction [Recovered/Resolved]
  - Rash erythematous [Recovered/Resolved]
  - Dermatitis exfoliative [Recovered/Resolved]
